FAERS Safety Report 7882670-9 (Version None)
Quarter: 2011Q4

REPORT INFORMATION
  Report Type: 
  Country: None (occurrence: None)
  Receive Date: 20111101
  Receipt Date: 20110617
  Transmission Date: 20120403
  Serious: No
  Sender: FDA-Public Use
  Company Number: US-AMGEN-USASP2011031159

PATIENT
  Sex: Female

DRUGS (1)
  1. ENBREL [Suspect]
     Indication: PSORIATIC ARTHROPATHY
     Dosage: 25 MG, 2 TIMES/WK
     Dates: start: 19990801

REACTIONS (6)
  - OSTEOPOROSIS [None]
  - SCIATICA [None]
  - INJECTION SITE PAIN [None]
  - ARTHROPATHY [None]
  - ARTHRALGIA [None]
  - ORAL HERPES [None]
